FAERS Safety Report 6517011-2 (Version None)
Quarter: 2009Q4

REPORT INFORMATION
  Report Type: 
  Country: None (occurrence: None)
  Receive Date: 20091223
  Receipt Date: 20091215
  Transmission Date: 20100525
  Serious: Yes (Hospitalization)
  Sender: FDA-Public Use
  Company Number: GXKR2009JP13492

PATIENT
  Age: 40 Year
  Sex: Male

DRUGS (5)
  1. NORTRIPTYLINE (NGX) [Suspect]
     Indication: DEPRESSION
     Route: 065
  2. MIANSERIN (NGX) [Suspect]
     Indication: DEPRESSION
     Route: 065
  3. SERTRALINE HYDROCHLORIDE (NGX) [Suspect]
     Indication: DEPRESSION
     Route: 065
  4. AMANTADINE (NGX) [Suspect]
     Indication: DEPRESSION
     Route: 065
  5. BROTIZOLAM [Suspect]
     Indication: DEPRESSION
     Route: 065

REACTIONS (9)
  - BRUGADA SYNDROME [None]
  - CONVULSION [None]
  - ELECTROCARDIOGRAM PQ INTERVAL PROLONGED [None]
  - ELECTROCARDIOGRAM QRS COMPLEX PROLONGED [None]
  - ELECTROCARDIOGRAM ST SEGMENT ELEVATION [None]
  - ELECTROCARDIOGRAM T WAVE ABNORMAL [None]
  - FALL [None]
  - RESUSCITATION [None]
  - SYNCOPE [None]
